FAERS Safety Report 8984684 (Version 1)
Quarter: 2012Q4

REPORT INFORMATION
  Report Type: Spontaneous
  Country: US (occurrence: None)
  Receive Date: 20121217
  Receipt Date: 20121217
  Transmission Date: 20130627
  Serious: Yes (Hospitalization, Other)
  Sender: FDA-Public Use
  Company Number: 2012P1066475

PATIENT
  Age: 66 Year
  Sex: Female
  Weight: 95.26 kg

DRUGS (20)
  1. PREDNISONE [Suspect]
     Route: 048
     Dates: end: 201207
  2. PREDNISONE [Suspect]
     Dosage: 40-60 MG; QD; PO
     Route: 048
     Dates: end: 201207
  3. STEROID [Suspect]
     Dosage: u
     Dates: start: 20120226
  4. STEROID [Suspect]
     Dosage: u
     Dates: start: 20120226
  5. STEROID [Suspect]
     Dosage: U
     Dates: start: 201203
  6. STEROID [Suspect]
     Dosage: U
     Dates: start: 201203
  7. STEROID [Suspect]
     Dosage: U
     Dates: start: 20120424
  8. STEROID [Suspect]
     Dosage: U
     Dates: start: 20120424
  9. ANTIBIOTIC [Suspect]
     Dates: start: 20120226
  10. ANTIBIOTIC [Suspect]
     Dates: start: 201203
  11. ANTIBIOTIC [Suspect]
     Dates: start: 20120424
  12. PEPCID [Suspect]
     Dates: start: 20120511
  13. ENBREL [Suspect]
     Dates: start: 2006
  14. DULERA [Suspect]
     Dates: start: 201010, end: 20120511
  15. ADVAIR [Suspect]
     Dates: end: 201010
  16. SYMBICORT [Suspect]
     Dates: end: 20120511
  17. VENTOLIN [Suspect]
     Dates: end: 20120511
  18. ALLEGRA-D [Concomitant]
  19. DIOVAN [Concomitant]
  20. SINGULAIR [Concomitant]

REACTIONS (15)
  - Dyspnoea [None]
  - Swelling [None]
  - Bacterial infection [None]
  - Psoriatic arthropathy [None]
  - Tooth disorder [None]
  - Tooth discolouration [None]
  - Malaise [None]
  - Retching [None]
  - Productive cough [None]
  - Alopecia [None]
  - Feeling abnormal [None]
  - Bone loss [None]
  - Skin odour abnormal [None]
  - Laryngospasm [None]
  - Gastrooesophageal reflux disease [None]
